FAERS Safety Report 14679886 (Version 1)
Quarter: 2018Q1

REPORT INFORMATION
  Report Type: Spontaneous
  Country: SI (occurrence: US)
  Receive Date: 20180326
  Receipt Date: 20180326
  Transmission Date: 20180509
  Serious: Yes (Other)
  Sender: FDA-Public Use
  Company Number: SI-AMNEAL PHARMACEUTICALS-2018AMN00151

PATIENT
  Age: 55 Year
  Sex: Female

DRUGS (3)
  1. ANGIOTENSIN-CONVERTING ENZYME INHIBITOR [Concomitant]
     Active Substance: UNSPECIFIED INGREDIENT
     Indication: HYPERTENSION
     Dosage: UNK
     Route: 065
  2. PARICALCITOL. [Suspect]
     Active Substance: PARICALCITOL
     Indication: PROTEINURIA
     Dosage: 4 ?G, 1X/DAY
     Route: 065
  3. ANGIOTENSIN-RECEPTOR BLOCKER [Concomitant]
     Dosage: UNK
     Route: 065

REACTIONS (2)
  - Diastolic dysfunction [Not Recovered/Not Resolved]
  - Ventricular failure [Recovered/Resolved]
